FAERS Safety Report 11029536 (Version 7)
Quarter: 2015Q3

REPORT INFORMATION
  Report Type: Spontaneous
  Country: CA (occurrence: CA)
  Receive Date: 20150415
  Receipt Date: 20150930
  Transmission Date: 20151125
  Serious: Yes (Hospitalization, Other)
  Sender: FDA-Public Use
  Company Number: CA-ROCHE-1563164

PATIENT
  Sex: Female

DRUGS (7)
  1. XOLAIR [Suspect]
     Active Substance: OMALIZUMAB
     Route: 058
     Dates: start: 20150729
  2. OXYGEN. [Concomitant]
     Active Substance: OXYGEN
  3. XOLAIR [Suspect]
     Active Substance: OMALIZUMAB
     Route: 058
     Dates: start: 20150826
  4. XOLAIR [Suspect]
     Active Substance: OMALIZUMAB
     Route: 058
     Dates: start: 20150211
  5. SALINE [Concomitant]
     Active Substance: SODIUM CHLORIDE
     Route: 065
  6. XOLAIR [Suspect]
     Active Substance: OMALIZUMAB
     Indication: ASTHMA
     Route: 058
     Dates: start: 20150114
  7. XOLAIR [Suspect]
     Active Substance: OMALIZUMAB
     Route: 058
     Dates: start: 20150630

REACTIONS (20)
  - Feeling cold [Recovered/Resolved]
  - Malaise [Not Recovered/Not Resolved]
  - Dysphonia [Unknown]
  - Vomiting [Recovered/Resolved]
  - Oesophageal candidiasis [Unknown]
  - Blood pressure increased [Unknown]
  - Anaphylactic reaction [Unknown]
  - Chills [Recovered/Resolved]
  - Nausea [Not Recovered/Not Resolved]
  - Oxygen saturation decreased [Unknown]
  - Mastocytosis [Unknown]
  - Body temperature decreased [Unknown]
  - Muscle spasms [Recovered/Resolved]
  - Anxiety [Unknown]
  - Respiratory tract inflammation [Not Recovered/Not Resolved]
  - Eye swelling [Unknown]
  - Flushing [Not Recovered/Not Resolved]
  - Hypersensitivity [Unknown]
  - Laryngitis [Unknown]
  - Monocytosis [Unknown]
